FAERS Safety Report 25438300 (Version 1)
Quarter: 2025Q2

REPORT INFORMATION
  Report Type: Spontaneous
  Country: IT (occurrence: None)
  Receive Date: 20250616
  Receipt Date: 20250616
  Transmission Date: 20250717
  Serious: Yes (Life-Threatening, Hospitalization, Other)
  Sender: NATCO PHARMA
  Company Number: IT-NATCOUSA-2025-NATCOUSA-000321

PATIENT
  Age: 65 Year
  Sex: Male

DRUGS (1)
  1. NITROGLYCERIN [Suspect]
     Active Substance: NITROGLYCERIN
     Indication: Coronary ostial stenosis
     Route: 022

REACTIONS (2)
  - Off label use [Unknown]
  - Drug ineffective [Unknown]
